FAERS Safety Report 8081742-6 (Version None)
Quarter: 2012Q1

REPORT INFORMATION
  Report Type: 
  Country: None (occurrence: None)
  Receive Date: 20120130
  Receipt Date: 20120118
  Transmission Date: 20120608
  Serious: Yes (Other)
  Sender: FDA-Public Use
  Company Number: JP-ELI_LILLY_AND_COMPANY-JP201201005366

PATIENT
  Age: 75 Year
  Sex: Male

DRUGS (8)
  1. DECADRON [Concomitant]
     Dosage: 2 MG, PRN
     Route: 048
  2. TAMSULOSIN HCL [Concomitant]
     Dosage: 0.2 MG, UNK
     Route: 048
  3. CISPLATIN [Concomitant]
     Indication: LUNG ADENOCARCINOMA
     Dosage: UNK
     Route: 065
     Dates: start: 20110223
  4. ZOFRAN [Concomitant]
     Dosage: 4 MG, UNK
     Route: 048
  5. MAGNESIUM OXIDE [Concomitant]
     Dosage: 1 G, UNK
     Route: 048
  6. ALIMTA [Suspect]
     Indication: LUNG ADENOCARCINOMA
     Dosage: UNK
     Route: 042
     Dates: start: 20110223
  7. LOXOPROFEN [Concomitant]
     Dosage: 180 MG, UNK
     Route: 048
  8. GLYCERIN [Concomitant]
     Dosage: 60 ML, QD
     Route: 043
     Dates: start: 20110227, end: 20110227

REACTIONS (2)
  - HYPONATRAEMIA [None]
  - HICCUPS [None]
